FAERS Safety Report 4685333-6 (Version None)
Quarter: 2005Q2

REPORT INFORMATION
  Report Type: 
  Country: None (occurrence: None)
  Receive Date: 20050608
  Receipt Date: 20050530
  Transmission Date: 20051028
  Serious: Yes (Hospitalization)
  Sender: FDA-Public Use
  Company Number: AU-ROCHE-406274

PATIENT
  Age: 58 Year
  Sex: Male

DRUGS (15)
  1. MYCOPHENOLATE MOFETIL [Suspect]
     Route: 065
     Dates: start: 20050119, end: 20050119
  2. MYCOPHENOLATE MOFETIL [Suspect]
     Route: 065
     Dates: start: 20050120, end: 20050123
  3. MYCOPHENOLATE MOFETIL [Suspect]
     Route: 065
     Dates: start: 20050124, end: 20050130
  4. MYCOPHENOLATE MOFETIL [Suspect]
     Route: 065
     Dates: start: 20050131, end: 20050227
  5. MYCOPHENOLATE MOFETIL [Suspect]
     Route: 065
     Dates: start: 20050228
  6. CYCLOSPORINE [Suspect]
     Dosage: DOSAGE ADJUSTED TO REACH PREDEFINED TARGET LEVELS.
     Route: 065
     Dates: start: 20050119
  7. METHYLPREDNISOLONE [Suspect]
     Route: 065
     Dates: start: 20050119, end: 20050119
  8. PREDNISONE TAB [Suspect]
     Dosage: DOSAGE TAPERED BACK TO MAINTENANCE.
     Route: 065
     Dates: start: 20050120
  9. TIMENTIN [Concomitant]
     Indication: PROPHYLAXIS
     Dates: start: 20050118, end: 20050118
  10. GENTAMICIN [Concomitant]
     Indication: PROPHYLAXIS
     Dates: start: 20050118, end: 20050118
  11. VANCOMYCIN [Concomitant]
     Indication: PROPHYLAXIS
     Dates: start: 20050118, end: 20050118
  12. BACTRIM [Concomitant]
     Indication: PROPHYLAXIS
     Dates: start: 20050120
  13. GLUCAZIDE [Concomitant]
     Dates: start: 20050206
  14. VALGANCICLOVIR [Concomitant]
     Dates: start: 20050228, end: 20050406
  15. DOXYCYCLINE [Concomitant]
     Dates: start: 20050218, end: 20050314

REACTIONS (8)
  - CERUMEN IMPACTION [None]
  - CYTOMEGALOVIRUS INFECTION [None]
  - DIABETES MELLITUS [None]
  - HYPOACUSIS [None]
  - IMPAIRED HEALING [None]
  - POSTOPERATIVE WOUND COMPLICATION [None]
  - RECTAL HAEMORRHAGE [None]
  - UMBILICAL HERNIA REPAIR [None]
